FAERS Safety Report 19878240 (Version 1)
Quarter: 2021Q3

REPORT INFORMATION
  Report Type: Spontaneous
  Country: US (occurrence: US)
  Receive Date: 20210923
  Receipt Date: 20210923
  Transmission Date: 20211014
  Serious: No
  Sender: FDA-Public Use
  Company Number: NVSC2021US212871

PATIENT
  Age: 59 Year
  Sex: Male

DRUGS (2)
  1. BETAMETHASONE VALERATE. [Suspect]
     Active Substance: BETAMETHASONE VALERATE
     Indication: ACTINIC KERATOSIS
     Dosage: UNK
     Route: 061
  2. DICLOFENAC [Concomitant]
     Active Substance: DICLOFENAC
     Indication: PRODUCT USED FOR UNKNOWN INDICATION
     Dosage: UNK
     Route: 061

REACTIONS (8)
  - Fatigue [Recovered/Resolved]
  - Sleep disorder [Recovered/Resolved]
  - Blood pressure increased [Recovered/Resolved]
  - Personality change [Recovered/Resolved]
  - Vertigo [Recovered/Resolved]
  - Nausea [Recovered/Resolved]
  - Systemic toxicity [Recovered/Resolved]
  - Visual impairment [Recovered/Resolved]
